FAERS Safety Report 5454850-3 (Version None)
Quarter: 2007Q3

REPORT INFORMATION
  Report Type: 
  Country: None (occurrence: None)
  Receive Date: 20070917
  Receipt Date: 20061009
  Transmission Date: 20080115
  Serious: No
  Sender: FDA-Public Use
  Company Number: US-ASTRAZENECA-2006UW19559

PATIENT
  Age: 89 Year
  Sex: Male
  Weight: 57.6 kg

DRUGS (2)
  1. SEROQUEL [Suspect]
     Indication: DEPRESSION
     Route: 048
     Dates: start: 20050101
  2. SEROQUEL [Suspect]
     Route: 048
     Dates: end: 20061005

REACTIONS (3)
  - DYSKINESIA [None]
  - FALL [None]
  - HIP FRACTURE [None]
